FAERS Safety Report 11596075 (Version 1)
Quarter: 2015Q4

REPORT INFORMATION
  Report Type: Spontaneous
  Country: US (occurrence: US)
  Receive Date: 20151006
  Receipt Date: 20151006
  Transmission Date: 20160304
  Serious: No
  Sender: FDA-Public Use
  Company Number: US-LUNDBECK-DKLU2003797

PATIENT
  Age: 79 Year
  Sex: Female

DRUGS (1)
  1. NORTHERA [Suspect]
     Active Substance: DROXIDOPA
     Indication: PRODUCT USED FOR UNKNOWN INDICATION
     Route: 065
     Dates: end: 201509

REACTIONS (7)
  - Tremor [Unknown]
  - Hypersomnia [Unknown]
  - Drug dose omission [Unknown]
  - Feeling abnormal [Unknown]
  - Memory impairment [Unknown]
  - Confusional state [Unknown]
  - Incorrect dose administered [Unknown]

NARRATIVE: CASE EVENT DATE: 20150901
